FAERS Safety Report 24603165 (Version 1)
Quarter: 2024Q4

REPORT INFORMATION
  Report Type: Report from Study
  Country: EG (occurrence: EG)
  Receive Date: 20241111
  Receipt Date: 20241111
  Transmission Date: 20250115
  Serious: Yes (Life-Threatening)
  Sender: ROCHE
  Company Number: EG-002147023-NVSC2024EG215660

PATIENT
  Sex: Male
  Weight: 90 kg

DRUGS (5)
  1. XOLAIR [Suspect]
     Active Substance: OMALIZUMAB
     Indication: Urticaria
     Dosage: 150 MG (2 VIALS EVERY MONTH), QMO
     Route: 050
  2. ZYRTEC [Concomitant]
     Active Substance: CETIRIZINE HYDROCHLORIDE
     Indication: Hypersensitivity
     Dosage: UNK (1 OR 2 TABLETS), PRN(TABLET)
     Route: 050
  3. PHENIRAMINE [Concomitant]
     Active Substance: PHENIRAMINE
     Indication: Hypersensitivity
     Dosage: 45.5 MG, PRN (VIAL)
     Route: 050
  4. FEXOFENADINE [Concomitant]
     Active Substance: FEXOFENADINE HYDROCHLORIDE
     Indication: Hypersensitivity
     Dosage: UNK, QD (TABLET)
     Route: 050
  5. CORTISONE [Concomitant]
     Active Substance: CORTISONE
     Indication: Hypersensitivity
     Dosage: UNK (TABLET)
     Route: 050

REACTIONS (5)
  - Hypersensitivity [Not Recovered/Not Resolved]
  - Therapeutic product effect incomplete [Not Recovered/Not Resolved]
  - Limb injury [Unknown]
  - Headache [Unknown]
  - Hypertension [Unknown]
